FAERS Safety Report 5877187-7 (Version None)
Quarter: 2008Q3

REPORT INFORMATION
  Report Type: 
  Country: None (occurrence: None)
  Receive Date: 20080910
  Receipt Date: 20080829
  Transmission Date: 20090109
  Serious: Yes (Hospitalization)
  Sender: FDA-Public Use
  Company Number: US-PFIZER INC-2008028099

PATIENT
  Sex: Male
  Weight: 98.9 kg

DRUGS (9)
  1. SUTENT [Suspect]
     Indication: RENAL CELL CARCINOMA
     Route: 048
     Dates: start: 20050523
  2. PRILOSEC [Concomitant]
     Route: 048
     Dates: start: 20010101
  3. ALBUTEROL [Concomitant]
     Dosage: TEXT:2 PUFFS-FREQ:DAILY PRN
     Route: 055
     Dates: start: 20051108
  4. ALLOPURINOL [Concomitant]
     Route: 048
     Dates: start: 20050919
  5. SIMVASTATIN [Concomitant]
     Route: 048
     Dates: start: 20080301
  6. LISINOPRIL [Concomitant]
     Route: 048
     Dates: start: 20061218
  7. COMPAZINE [Concomitant]
     Route: 048
     Dates: start: 20051111
  8. FISH OIL [Concomitant]
     Dosage: TEXT:1-2 TABS-FREQ:DAILY
     Route: 048
     Dates: start: 20080301
  9. LOPERAMIDE HYDROCHLORIDE [Concomitant]
     Dosage: TEXT:1-2 TABS-FREQ:DAILY PRN
     Route: 048
     Dates: start: 20080220

REACTIONS (2)
  - ELECTROCARDIOGRAM CHANGE [None]
  - HYPERTENSION [None]
